FAERS Safety Report 12332813 (Version 2)
Quarter: 2017Q1

REPORT INFORMATION
  Report Type: Spontaneous
  Country: DE (occurrence: DE)
  Receive Date: 20160504
  Receipt Date: 20170110
  Transmission Date: 20170428
  Serious: Yes (Hospitalization, Disabling, Other)
  Sender: FDA-Public Use
  Company Number: GXKR2016DE001865

PATIENT
  Age: 78 Year
  Sex: Male
  Weight: 71 kg

DRUGS (1)
  1. LEVOFLOXACIN HEXAL [Suspect]
     Active Substance: LEVOFLOXACIN
     Indication: PNEUMONIA
     Dosage: 1000 MG, QD
     Route: 048
     Dates: start: 20160404, end: 20160408

REACTIONS (5)
  - Tendon pain [Unknown]
  - Tendon rupture [Unknown]
  - Hypotension [Unknown]
  - Deep vein thrombosis [Recovering/Resolving]
  - Tendonitis [Not Recovered/Not Resolved]

NARRATIVE: CASE EVENT DATE: 20160408
